FAERS Safety Report 5813577-6 (Version None)
Quarter: 2008Q3

REPORT INFORMATION
  Report Type: 
  Country: None (occurrence: None)
  Receive Date: 20080716
  Receipt Date: 20080716
  Transmission Date: 20090109
  Serious: Yes (Hospitalization)
  Sender: FDA-Public Use
  Company Number: None

PATIENT
  Age: 28 Year
  Sex: Male

DRUGS (1)
  1. SODIUM NITROPRUSSIDE [Suspect]
     Dosage: SEE ABOVE

REACTIONS (1)
  - CONVULSION [None]
